FAERS Safety Report 5789206-7 (Version None)
Quarter: 2008Q2

REPORT INFORMATION
  Report Type: 
  Country: None (occurrence: None)
  Receive Date: 20080626
  Receipt Date: 20080104
  Transmission Date: 20081010
  Serious: No
  Sender: FDA-Public Use
  Company Number: US-ASTRAZENECA-2008UW00322

PATIENT
  Age: 65 Year
  Sex: Female
  Weight: 59 kg

DRUGS (7)
  1. PULMICORT FLEXHALER [Suspect]
     Indication: ASTHMA
     Route: 055
  2. TOPROL-XL [Concomitant]
  3. SYNTHROID [Concomitant]
  4. HYDROCHLOROTHIAZIDE [Concomitant]
  5. SINGULAIR [Concomitant]
  6. ALBUTEROL [Concomitant]
  7. FLONASE [Concomitant]

REACTIONS (1)
  - HYPOAESTHESIA [None]
